FAERS Safety Report 22843045 (Version 5)
Quarter: 2024Q1

REPORT INFORMATION
  Report Type: Report from Study
  Country: CO (occurrence: CO)
  Receive Date: 20230821
  Receipt Date: 20240105
  Transmission Date: 20240410
  Serious: Yes (Other)
  Sender: FDA-Public Use
  Company Number: CO-002147023-NVSC2023CO180698

PATIENT
  Age: 51 Year
  Sex: Female

DRUGS (4)
  1. GILENYA [Suspect]
     Active Substance: FINGOLIMOD HYDROCHLORIDE
     Indication: Multiple sclerosis
     Dosage: 0.5 MG, QD (START DATE: 2 YEARS AGO)
     Route: 048
     Dates: start: 20220725, end: 202309
  2. GILENYA [Suspect]
     Active Substance: FINGOLIMOD HYDROCHLORIDE
     Dosage: 0.5 MG, QD (STARTED IN NOV)
     Route: 048
  3. ACETAMINOPHEN [Concomitant]
     Active Substance: ACETAMINOPHEN
     Indication: Product used for unknown indication
     Dosage: UNK
     Route: 065
  4. PREGABALIN [Concomitant]
     Active Substance: PREGABALIN
     Indication: Product used for unknown indication
     Dosage: UNK
     Route: 065

REACTIONS (10)
  - Neoplasm malignant [Unknown]
  - Multiple sclerosis relapse [Unknown]
  - Paraesthesia [Unknown]
  - Headache [Unknown]
  - Malaise [Unknown]
  - Facial pain [Unknown]
  - Pain in extremity [Unknown]
  - Pain in extremity [Recovered/Resolved]
  - Abdominal pain upper [Recovered/Resolved]
  - Product availability issue [Unknown]

NARRATIVE: CASE EVENT DATE: 20231215
